FAERS Safety Report 8414184-1 (Version None)
Quarter: 2012Q2

REPORT INFORMATION
  Report Type: 
  Country: None (occurrence: None)
  Receive Date: 20120323
  Receipt Date: 20111209
  Transmission Date: 20120825
  Serious: Yes (Hospitalization, Other)
  Sender: FDA-Public Use
  Company Number: 163-21880-11121527

PATIENT
  Age: 83 Year
  Sex: Female

DRUGS (14)
  1. COUMADIN [Concomitant]
  2. SEREVENT [Concomitant]
  3. OXYCODONE HCL [Concomitant]
  4. ZOVIRAX [Concomitant]
  5. FENTANYL [Concomitant]
  6. REVLIMID [Suspect]
     Indication: MULTIPLE MYELOMA
     Dosage: 10 MG, QD X 21D/28D X 4 CYCLES, PO 5 MG, QD X 21D/28D, PO 5 MG, EVERY OTHER DAY X 21D/28D, CYCLE #10
     Route: 048
     Dates: start: 20110124, end: 20110101
  7. REVLIMID [Suspect]
     Indication: MULTIPLE MYELOMA
     Dosage: 10 MG, QD X 21D/28D X 4 CYCLES, PO 5 MG, QD X 21D/28D, PO 5 MG, EVERY OTHER DAY X 21D/28D, CYCLE #10
     Route: 048
     Dates: start: 20110101, end: 20110101
  8. REVLIMID [Suspect]
     Indication: MULTIPLE MYELOMA
     Dosage: 10 MG, QD X 21D/28D X 4 CYCLES, PO 5 MG, QD X 21D/28D, PO 5 MG, EVERY OTHER DAY X 21D/28D, CYCLE #10
     Route: 048
     Dates: start: 20111120, end: 20110101
  9. DECADRON [Concomitant]
  10. ZOCOR [Concomitant]
  11. ZOLPIDEM [Concomitant]
  12. REVLIMID [Suspect]
  13. PRILOSEC [Concomitant]
  14. METOPROLOL TARTRATE [Concomitant]

REACTIONS (2)
  - PNEUMONIA [None]
  - NEUTROPENIA [None]
